FAERS Safety Report 25244497 (Version 1)
Quarter: 2025Q2

REPORT INFORMATION
  Report Type: Spontaneous
  Country: DE (occurrence: DE)
  Receive Date: 20250428
  Receipt Date: 20250428
  Transmission Date: 20250717
  Serious: Yes (Other)
  Sender: ALKEM
  Company Number: DE-ALKEM LABORATORIES LIMITED-DE-ALKEM-2025-01329

PATIENT
  Age: 31 Year
  Sex: Female

DRUGS (1)
  1. SIROLIMUS [Suspect]
     Active Substance: SIROLIMUS
     Indication: Rhabdomyolysis
     Dosage: 4 MILLIGRAM, QD (2.16 MILLIGRAM PER SQUARE METER)
     Route: 065

REACTIONS (3)
  - Exposure during pregnancy [Unknown]
  - Aphthous ulcer [Unknown]
  - Off label use [Unknown]
